FAERS Safety Report 7032423-9 (Version None)
Quarter: 2010Q4

REPORT INFORMATION
  Report Type: 
  Country: None (occurrence: None)
  Receive Date: 20101001
  Receipt Date: 20100920
  Transmission Date: 20110411
  Serious: Yes (Hospitalization)
  Sender: FDA-Public Use
  Company Number: APP201000767

PATIENT
  Age: 80 Year
  Sex: Male
  Weight: 92.5 kg

DRUGS (10)
  1. DEXAMETHASONE SODIUM PHOSPHATE [Suspect]
     Dosage: INTRAVENOUS
     Route: 042
     Dates: start: 20070611, end: 20070611
  2. PACLITAXEL [Suspect]
     Indication: NON-SMALL CELL LUNG CANCER
     Dosage: INTRAVENOUS
     Route: 042
     Dates: start: 20070611, end: 20070611
  3. STUDY DRUG IND# BB11156 [Suspect]
     Indication: NON-SMALL CELL LUNG CANCER
     Dosage: 1 IN 3 WK, INTRAVENOUS
     Route: 042
     Dates: start: 20070611, end: 20070611
  4. CARBOPLATIN [Suspect]
     Indication: NON-SMALL CELL LUNG CANCER
     Dosage: AUC=6; TDD : AUC=6, INTRAVENOUS
     Route: 042
     Dates: start: 20070611, end: 20070611
  5. INSULIN GLARGINE (INSULIN GLARGINE) [Suspect]
     Indication: PRODUCT USED FOR UNKNOWN INDICATION
     Dates: start: 20070629
  6. PIOGLITAZONE [Concomitant]
  7. ATENOLOL [Concomitant]
  8. ASPIRIN [Concomitant]
  9. LOVASTATIN [Concomitant]
  10. INSULIN LISPRO (INSULIN LISPRO) [Concomitant]

REACTIONS (3)
  - DEHYDRATION [None]
  - DIABETIC COMPLICATION [None]
  - HYPERGLYCAEMIA [None]
